FAERS Safety Report 14902622 (Version 1)
Quarter: 2018Q2

REPORT INFORMATION
  Report Type: Spontaneous
  Country: US (occurrence: US)
  Receive Date: 20180516
  Receipt Date: 20180516
  Transmission Date: 20180711
  Serious: No
  Sender: FDA-Public Use
  Company Number: US-SA-2017SA085184

PATIENT
  Sex: Female

DRUGS (3)
  1. HUMALOG [Concomitant]
     Active Substance: INSULIN LISPRO
  2. NOVOLOG [Concomitant]
     Active Substance: INSULIN ASPART
  3. LANTUS [Suspect]
     Active Substance: INSULIN GLARGINE
     Indication: DIABETES MELLITUS
     Dosage: DOSE:55 UNIT(S)
     Route: 065
     Dates: start: 2013

REACTIONS (3)
  - Intentional product misuse [Unknown]
  - Astigmatism [Unknown]
  - Visual impairment [Unknown]
